FAERS Safety Report 23974484 (Version 2)
Quarter: 2024Q2

REPORT INFORMATION
  Report Type: Report from Study
  Country: BR (occurrence: BR)
  Receive Date: 20240614
  Receipt Date: 20240627
  Transmission Date: 20240716
  Serious: Yes (Other)
  Sender: FDA-Public Use
  Company Number: BR-JNJFOC-20240576375

PATIENT
  Age: 22 Year
  Sex: Female
  Weight: 54 kg

DRUGS (2)
  1. INFLIXIMAB [Suspect]
     Active Substance: INFLIXIMAB
     Indication: Crohn^s disease
     Route: 041
     Dates: end: 20240307
  2. INFLIXIMAB [Suspect]
     Active Substance: INFLIXIMAB
     Indication: Crohn^s disease
     Route: 041

REACTIONS (6)
  - Crohn^s disease [Unknown]
  - Nasopharyngitis [Recovered/Resolved]
  - Faeces hard [Unknown]
  - Influenza [Unknown]
  - Abdominal pain [Unknown]
  - Dysmenorrhoea [Unknown]

NARRATIVE: CASE EVENT DATE: 20240502
